FAERS Safety Report 10263230 (Version 2)
Quarter: 2014Q2

REPORT INFORMATION
  Report Type: Report from Study
  Country: US (occurrence: US)
  Receive Date: 20140626
  Receipt Date: 20140626
  Transmission Date: 20141212
  Serious: Yes (Other)
  Sender: FDA-Public Use
  Company Number: US-MYLANLABS-2014S1009571

PATIENT
  Age: 37 Year
  Sex: Male
  Weight: 87 kg

DRUGS (8)
  1. CLOZAPINE TABLETS [Suspect]
     Route: 048
     Dates: end: 20140424
  2. DOCUSATE SODIUM [Concomitant]
  3. FLONASE /00908302/ [Concomitant]
  4. GUAIFENESIN [Concomitant]
  5. KEPPRA [Concomitant]
  6. CLARITIN /00413701/ [Concomitant]
  7. METRONIDAZOLE [Concomitant]
  8. MULTIVITAMIN [Concomitant]

REACTIONS (1)
  - Granulocytopenia [Not Recovered/Not Resolved]
